FAERS Safety Report 18345929 (Version 2)
Quarter: 2020Q4

REPORT INFORMATION
  Report Type: Report from Study
  Country: DE (occurrence: DE)
  Receive Date: 20201005
  Receipt Date: 20201007
  Transmission Date: 20210114
  Serious: Yes (Hospitalization, Other)
  Sender: FDA-Public Use
  Company Number: DE-JNJFOC-20200941356

PATIENT
  Age: 21 Year
  Sex: Female
  Weight: 57 kg

DRUGS (3)
  1. IVABRADINE [Concomitant]
     Active Substance: IVABRADINE
     Indication: POSTURAL ORTHOSTATIC TACHYCARDIA SYNDROME
     Route: 065
  2. STELARA [Suspect]
     Active Substance: USTEKINUMAB
     Indication: CROHN^S DISEASE
     Route: 058
  3. BISOPROLOL [Concomitant]
     Active Substance: BISOPROLOL
     Indication: POSTURAL ORTHOSTATIC TACHYCARDIA SYNDROME
     Route: 065

REACTIONS (5)
  - Diarrhoea [Recovered/Resolved]
  - Presyncope [Recovered/Resolved]
  - Dehydration [Recovered/Resolved]
  - Arthritis [Unknown]
  - Pyrexia [Unknown]

NARRATIVE: CASE EVENT DATE: 20200703
